FAERS Safety Report 9258114 (Version 1)
Quarter: 2013Q1

REPORT INFORMATION
  Report Type: Spontaneous
  Country: US (occurrence: None)
  Receive Date: 20121212
  Receipt Date: 20121212
  Transmission Date: 20140127
  Serious: No
  Sender: FDA-Public Use
  Company Number: 1209USA004495

PATIENT
  Age: 50 Year
  Sex: Female

DRUGS (3)
  1. PEGINTRON [Suspect]
     Indication: HEPATITIS C
     Dates: start: 20120606
  2. REBETOL [Suspect]
     Indication: HEPATITIS C
  3. VICTRELIS [Suspect]
     Indication: HEPATITIS C
     Dates: start: 20120704

REACTIONS (7)
  - Panic reaction [None]
  - Nausea [None]
  - Depressed mood [None]
  - Mood altered [None]
  - Fatigue [None]
  - Anaemia [None]
  - Menometrorrhagia [None]
